FAERS Safety Report 18911130 (Version 2)
Quarter: 2021Q1

REPORT INFORMATION
  Report Type: Spontaneous
  Country: US (occurrence: US)
  Receive Date: 20210218
  Receipt Date: 20210304
  Transmission Date: 20210420
  Serious: No
  Sender: FDA-Public Use
  Company Number: US-CELGENEUS-USA-20210203242

PATIENT
  Age: 92 Year
  Sex: Female

DRUGS (1)
  1. POMALYST [Suspect]
     Active Substance: POMALIDOMIDE
     Indication: PLASMA CELL MYELOMA
     Dosage: 3 MILLIGRAM
     Route: 048
     Dates: start: 20210204

REACTIONS (5)
  - Visual impairment [Unknown]
  - Auditory disorder [Unknown]
  - Rash pruritic [Unknown]
  - Heart rate decreased [Unknown]
  - Pruritus [Unknown]

NARRATIVE: CASE EVENT DATE: 202102
